FAERS Safety Report 4987362-1 (Version None)
Quarter: 2006Q2

REPORT INFORMATION
  Report Type: 
  Country: None (occurrence: None)
  Receive Date: 20060501
  Receipt Date: 20050928
  Transmission Date: 20061013
  Serious: Yes (Hospitalization)
  Sender: FDA-Public Use
  Company Number: US-MERCK-0509USA04517

PATIENT
  Age: 59 Year
  Sex: Female
  Weight: 105 kg

DRUGS (8)
  1. VIOXX [Suspect]
     Indication: ARTHRALGIA
     Route: 048
     Dates: start: 20010122, end: 20040930
  2. VIOXX [Suspect]
     Route: 048
     Dates: start: 20010122, end: 20040930
  3. VITAMINS (UNSPECIFIED) [Concomitant]
     Route: 065
  4. ZANTAC [Concomitant]
     Route: 065
  5. GLUCOPHAGE [Concomitant]
     Route: 065
  6. PREMARIN [Concomitant]
     Route: 065
  7. MEPROBAMATE [Concomitant]
     Route: 065
  8. SYNTHROID [Concomitant]
     Route: 065

REACTIONS (15)
  - ABDOMINAL PAIN [None]
  - ANIMAL BITE [None]
  - ANXIETY [None]
  - CEREBRAL INFARCTION [None]
  - CEREBROVASCULAR ACCIDENT [None]
  - CHEST PAIN [None]
  - HYPERLIPIDAEMIA [None]
  - INCONTINENCE [None]
  - LACERATION [None]
  - METABOLIC SYNDROME [None]
  - PAIN [None]
  - PHARYNGITIS [None]
  - RENAL CYST [None]
  - UPPER RESPIRATORY TRACT INFECTION [None]
  - VENTRICULAR HYPERTROPHY [None]
